FAERS Safety Report 9267654 (Version 1)
Quarter: 2013Q2

REPORT INFORMATION
  Report Type: Report from Study
  Country: US (occurrence: US)
  Receive Date: 20130502
  Receipt Date: 20130502
  Transmission Date: 20140414
  Serious: No
  Sender: FDA-Public Use
  Company Number: US-ALEXION-A201200722

PATIENT
  Sex: 0

DRUGS (1)
  1. SOLIRIS 300MG [Suspect]
     Indication: HAEMOLYTIC URAEMIC SYNDROME

REACTIONS (4)
  - Abdominal discomfort [Not Recovered/Not Resolved]
  - Oedema [Unknown]
  - Pain [Unknown]
  - Anxiety [Unknown]
